FAERS Safety Report 16767085 (Version 2)
Quarter: 2019Q3

REPORT INFORMATION
  Report Type: Spontaneous
  Country: DE (occurrence: DE)
  Receive Date: 20190903
  Receipt Date: 20190917
  Transmission Date: 20191005
  Serious: Yes (Other)
  Sender: FDA-Public Use
  Company Number: DE-ABBVIE-19K-062-2908244-00

PATIENT
  Age: 48 Year
  Sex: Female
  Weight: 69.92 kg

DRUGS (3)
  1. TERIFLUNOMIDA [Concomitant]
     Indication: PRODUCT USED FOR UNKNOWN INDICATION
  2. HUMIRA [Suspect]
     Active Substance: ADALIMUMAB
     Indication: ANKYLOSING SPONDYLITIS
     Route: 058
     Dates: start: 2015, end: 201811
  3. HUMIRA [Suspect]
     Active Substance: ADALIMUMAB
     Indication: RHEUMATOID ARTHRITIS

REACTIONS (8)
  - Central nervous system lesion [Not Recovered/Not Resolved]
  - Borrelia infection [Unknown]
  - Nystagmus [Unknown]
  - Multiple sclerosis [Unknown]
  - Sensory disturbance [Unknown]
  - Blood immunoglobulin G increased [Unknown]
  - Central nervous system lesion [Unknown]
  - Encephalitis brain stem [Recovering/Resolving]

NARRATIVE: CASE EVENT DATE: 201811
